FAERS Safety Report 14289564 (Version 5)
Quarter: 2019Q2

REPORT INFORMATION
  Report Type: Spontaneous
  Country: US (occurrence: US)
  Receive Date: 20171214
  Receipt Date: 20190624
  Transmission Date: 20190711
  Serious: Yes (Hospitalization)
  Sender: FDA-Public Use
  Company Number: US-ACTELION-A-NJ2017-160526

PATIENT
  Age: 58 Year
  Sex: Female

DRUGS (16)
  1. VITAMIN D 2000 [Concomitant]
     Active Substance: VITAMIN D NOS
  2. CARDURA [Concomitant]
     Active Substance: DOXAZOSIN MESYLATE
  3. PREVACID [Concomitant]
     Active Substance: LANSOPRAZOLE
  4. TYVASO [Suspect]
     Active Substance: TREPROSTINIL
     Dosage: 3 BREATHS, QID
     Route: 055
  5. TYVASO [Suspect]
     Active Substance: TREPROSTINIL
     Dosage: 6 BREATHS, QID
     Route: 055
  6. DETROL [Concomitant]
     Active Substance: TOLTERODINE TARTRATE
  7. AMBIEN [Concomitant]
     Active Substance: ZOLPIDEM TARTRATE
  8. SPIRONOLACTONE. [Concomitant]
     Active Substance: SPIRONOLACTONE
  9. OPSUMIT [Suspect]
     Active Substance: MACITENTAN
     Indication: PULMONARY ARTERIAL HYPERTENSION
     Dosage: 10 MG, QD
     Route: 048
     Dates: start: 20170913
  10. TYVASO [Suspect]
     Active Substance: TREPROSTINIL
     Indication: PRODUCT USED FOR UNKNOWN INDICATION
     Dosage: 9 BREATHS, QID
     Route: 055
  11. RAMIPRIL. [Concomitant]
     Active Substance: RAMIPRIL
  12. DILTIAZEM CD [Concomitant]
     Active Substance: DILTIAZEM
  13. LATANOPROST. [Concomitant]
     Active Substance: LATANOPROST
  14. TYVASO [Suspect]
     Active Substance: TREPROSTINIL
     Dosage: 9 BREATHS, QID
     Route: 055
  15. CELLCEPT [Concomitant]
     Active Substance: MYCOPHENOLATE MOFETIL\MYCOPHENOLATE MOFETIL HYDROCHLORIDE
  16. TADALAFIL. [Concomitant]
     Active Substance: TADALAFIL
     Dosage: 40 MG, QD
     Dates: start: 20190514

REACTIONS (6)
  - Headache [Recovered/Resolved]
  - Hypotension [Unknown]
  - Nausea [Recovered/Resolved]
  - Migraine [Recovered/Resolved]
  - Cardiac ablation [Unknown]
  - Device use error [Recovered/Resolved]

NARRATIVE: CASE EVENT DATE: 201709
